FAERS Safety Report 9109573 (Version 1)
Quarter: 2013Q1

REPORT INFORMATION
  Report Type: Spontaneous
  Country: US (occurrence: US)
  Receive Date: 20130222
  Receipt Date: 20130222
  Transmission Date: 20140127
  Serious: No
  Sender: FDA-Public Use
  Company Number: US-TEVA-355857USA

PATIENT
  Sex: Male
  Weight: 95.79 kg

DRUGS (6)
  1. TREANDA [Suspect]
     Indication: CHRONIC LYMPHOCYTIC LEUKAEMIA
     Dosage: 200 MILLIGRAM DAILY;
     Route: 042
     Dates: start: 20120814, end: 20120815
  2. RITUXAN [Concomitant]
  3. GRANISETRON [Concomitant]
  4. DEXAMETHASONE [Concomitant]
  5. BENADRYL [Concomitant]
  6. TYLENOL [Concomitant]

REACTIONS (3)
  - Extravasation [Not Recovered/Not Resolved]
  - Infusion site erythema [Not Recovered/Not Resolved]
  - Infusion site swelling [Not Recovered/Not Resolved]
